FAERS Safety Report 6755412-8 (Version None)
Quarter: 2010Q2

REPORT INFORMATION
  Report Type: 
  Country: None (occurrence: None)
  Receive Date: 20100604
  Receipt Date: 20100527
  Transmission Date: 20101027
  Serious: Yes (Hospitalization)
  Sender: FDA-Public Use
  Company Number: JP-JNJFOC-20100600817

PATIENT
  Age: 37 Year
  Sex: Female

DRUGS (1)
  1. CRAVIT [Suspect]
     Indication: LYMPHADENITIS
     Route: 048

REACTIONS (2)
  - ANAPHYLACTOID REACTION [None]
  - COUGH [None]
